FAERS Safety Report 9916251 (Version 3)
Quarter: 2014Q4

REPORT INFORMATION
  Report Type: Spontaneous
  Country: GB (occurrence: None)
  Receive Date: 20140219
  Receipt Date: 20141020
  Transmission Date: 20150529
  Serious: Yes (Hospitalization, Disabling)
  Sender: FDA-Public Use
  Company Number: SP07509

PATIENT
  Age: 66 Year
  Sex: Female

DRUGS (4)
  1. XIFAXAN [Suspect]
     Active Substance: RIFAXIMIN
     Indication: ENCEPHALOPATHY
     Dosage: ORAL
     Route: 048
     Dates: start: 201312
  2. SIMVASTATIN. [Suspect]
     Active Substance: SIMVASTATIN
     Indication: HYPERCHOLESTEROLAEMIA
     Dates: start: 2004, end: 20140110
  3. SPIRONOLACTONE. [Concomitant]
     Active Substance: SPIRONOLACTONE
  4. LACTULOSE. [Concomitant]
     Active Substance: LACTULOSE

REACTIONS (4)
  - Rhabdomyolysis [None]
  - Immune-mediated necrotising myopathy [None]
  - Blood creatine phosphokinase increased [None]
  - Drug interaction [None]

NARRATIVE: CASE EVENT DATE: 20140104
